FAERS Safety Report 8326420-0 (Version None)
Quarter: 2012Q2

REPORT INFORMATION
  Report Type: 
  Country: None (occurrence: None)
  Receive Date: 20120501
  Receipt Date: 20120424
  Transmission Date: 20120825
  Serious: Yes (Hospitalization)
  Sender: FDA-Public Use
  Company Number: FR-MERCK-1204USA04245

PATIENT
  Age: 77 Year
  Sex: Female

DRUGS (21)
  1. XELODA [Suspect]
     Indication: BREAST CANCER
     Route: 048
     Dates: start: 20120208, end: 20120314
  2. POTASSIUM CHLORIDE [Concomitant]
     Route: 065
  3. ALLOPURINOL [Concomitant]
     Route: 065
  4. TRAMADOL HCL [Concomitant]
     Dosage: IF NEEDED
     Route: 065
  5. LOVENOX [Concomitant]
     Route: 065
  6. NEXIUM [Concomitant]
     Route: 065
  7. BISOPROLOL FUMARATE AND HYDROCHLOROTHIAZIDE [Concomitant]
     Route: 065
  8. LORAZEPAM [Concomitant]
     Route: 065
  9. MAGNESIUM SULFATE [Concomitant]
     Route: 065
     Dates: start: 20111115
  10. EMEND [Suspect]
     Indication: PROPHYLAXIS OF NAUSEA AND VOMITING
     Route: 048
     Dates: start: 20120208, end: 20120302
  11. HERCEPTIN [Suspect]
     Indication: GASTRIC CANCER
     Route: 042
     Dates: start: 20120208, end: 20120229
  12. XELODA [Suspect]
     Indication: GASTRIC CANCER
     Route: 048
     Dates: start: 20120208, end: 20120314
  13. CISPLATIN [Suspect]
     Indication: GASTRIC CANCER
     Route: 042
     Dates: start: 20120208, end: 20120229
  14. HERCEPTIN [Suspect]
     Indication: BREAST CANCER
     Route: 042
     Dates: start: 20120208, end: 20120229
  15. IPERTEN [Concomitant]
     Route: 065
  16. ACETAMINOPHEN [Concomitant]
     Route: 065
  17. ZOFRAN [Concomitant]
     Route: 065
  18. XENETIX [Concomitant]
     Route: 065
  19. CORDARONE [Concomitant]
     Route: 065
     Dates: start: 20111115
  20. EMEND [Suspect]
     Route: 048
     Dates: start: 20120208, end: 20120302
  21. CISPLATIN [Suspect]
     Indication: BREAST CANCER
     Route: 042
     Dates: start: 20120208, end: 20120229

REACTIONS (3)
  - NEUTROPENIC COLITIS [None]
  - DIARRHOEA [None]
  - NEUTROPENIA [None]
